FAERS Safety Report 17647103 (Version 1)
Quarter: 2020Q2

REPORT INFORMATION
  Report Type: Spontaneous
  Country: CN (occurrence: CN)
  Receive Date: 20200408
  Receipt Date: 20200408
  Transmission Date: 20200713
  Serious: Yes (Other)
  Sender: FDA-Public Use
  Company Number: CN-PFIZER INC-2020142042

PATIENT
  Age: 89 Year
  Sex: Female
  Weight: 67 kg

DRUGS (2)
  1. PREGABALIN. [Suspect]
     Active Substance: PREGABALIN
     Indication: THERAPEUTIC PROCEDURE
     Dosage: 75 MG, 2X/DAY
     Route: 048
     Dates: start: 20200217
  2. VALTREX [Concomitant]
     Active Substance: VALACYCLOVIR HYDROCHLORIDE
     Indication: THERAPEUTIC PROCEDURE
     Dosage: 1 G, 3X/DAY
     Route: 048
     Dates: start: 20200217, end: 20200224

REACTIONS (1)
  - Hyponatraemia [Recovering/Resolving]

NARRATIVE: CASE EVENT DATE: 20200225
